FAERS Safety Report 20022303 (Version 3)
Quarter: 2021Q4

REPORT INFORMATION
  Report Type: Spontaneous
  Country: FR (occurrence: FR)
  Receive Date: 20211102
  Receipt Date: 20211130
  Transmission Date: 20220303
  Serious: Yes (Other)
  Sender: FDA-Public Use
  Company Number: FR-ORGANON-O2110FRA002884

PATIENT
  Sex: Female

DRUGS (1)
  1. NEXPLANON [Suspect]
     Active Substance: ETONOGESTREL
     Dosage: 1 IMPLANT
     Route: 059

REACTIONS (6)
  - Device embolisation [Not Recovered/Not Resolved]
  - Surgery [Unknown]
  - Vascular operation [Unknown]
  - Amenorrhoea [Unknown]
  - Medical device site reaction [Not Recovered/Not Resolved]
  - Complication of device removal [Not Recovered/Not Resolved]
